FAERS Safety Report 5830912-3 (Version None)
Quarter: 2008Q3

REPORT INFORMATION
  Report Type: 
  Country: None (occurrence: None)
  Receive Date: 20080801
  Receipt Date: 20080130
  Transmission Date: 20090109
  Serious: No
  Sender: FDA-Public Use
  Company Number: US-BRISTOL-MYERS SQUIBB COMPANY-14060040

PATIENT
  Age: 67 Year
  Sex: Female
  Weight: 55 kg

DRUGS (3)
  1. COUMADIN [Suspect]
     Indication: DEEP VEIN THROMBOSIS
     Dosage: DAILY DOSAGE FLUCTUATES BETWEEN 6MG, 5MG OR 7MG.
  2. SIMVASTATIN [Concomitant]
  3. SYNTHROID [Concomitant]

REACTIONS (3)
  - CHEST PAIN [None]
  - INTERNATIONAL NORMALISED RATIO FLUCTUATION [None]
  - OEDEMA PERIPHERAL [None]
